FAERS Safety Report 11088150 (Version 3)
Quarter: 2015Q2

REPORT INFORMATION
  Report Type: Report from Study
  Country: HU (occurrence: HU)
  Receive Date: 20150504
  Receipt Date: 20150519
  Transmission Date: 20150821
  Serious: Yes (Death)
  Sender: FDA-Public Use
  Company Number: HU-PFIZER INC-2015148906

PATIENT
  Age: 58 Year
  Sex: Male
  Weight: 99 kg

DRUGS (4)
  1. MEFORAL [Concomitant]
     Indication: DIABETES MELLITUS
     Dosage: 500 MG, 2X/DAY
     Route: 048
     Dates: start: 20120305
  2. EBRIT HCT [Concomitant]
     Indication: HYPERTENSION
     Dosage: 162.5 MG, 1X/DAY
     Route: 048
     Dates: start: 20120107
  3. TOFACITINIB CITRATE [Suspect]
     Active Substance: TOFACITINIB CITRATE
     Indication: PSORIASIS
     Dosage: UNK
     Route: 048
     Dates: start: 20120326
  4. MILURIT [Concomitant]
     Active Substance: ALLOPURINOL
     Indication: HYPERURICAEMIA
     Dosage: 1X/DAY
     Route: 048
     Dates: start: 20130905

REACTIONS (2)
  - Pneumonia [Fatal]
  - Bronchitis chronic [Fatal]

NARRATIVE: CASE EVENT DATE: 20150408
